FAERS Safety Report 20807831 (Version 1)
Quarter: 2022Q2

REPORT INFORMATION
  Report Type: Spontaneous
  Country: US (occurrence: None)
  Receive Date: 20220509
  Receipt Date: 20220509
  Transmission Date: 20220721
  Serious: Yes (Death, Hospitalization)
  Sender: FDA-Public Use
  Company Number: None

PATIENT
  Age: 73 Year
  Sex: Female

DRUGS (1)
  1. TADALAFIL [Suspect]
     Active Substance: TADALAFIL
     Indication: Pulmonary arterial hypertension
     Dosage: FREQUENCY : DAILY;?
     Route: 048
     Dates: start: 20181221, end: 20220426

REACTIONS (5)
  - Small intestinal obstruction [None]
  - Infection [None]
  - Sepsis [None]
  - Bronchial secretion retention [None]
  - Pulseless electrical activity [None]

NARRATIVE: CASE EVENT DATE: 20220426
